FAERS Safety Report 5218472-1 (Version None)
Quarter: 2007Q1

REPORT INFORMATION
  Report Type: 
  Country: None (occurrence: None)
  Receive Date: 20061201
  Receipt Date: 20060612
  Transmission Date: 20070707
  Serious: Yes (Other)
  Sender: FDA-Public Use
  Company Number: SUS1-2006-00475

PATIENT
  Age: 20 Year
  Sex: Male
  Weight: 68.9 kg

DRUGS (3)
  1. ADDERALL XR 10 [Suspect]
     Indication: ATTENTION DEFICIT/HYPERACTIVITY DISORDER
     Dosage: 25 MG, 1X/DAY:QD, ORAL
     Route: 048
     Dates: start: 20030919, end: 20060101
  2. ADVAIR DISKUS 100/50 [Concomitant]
  3. ALBUTEROL [Concomitant]

REACTIONS (1)
  - CONGESTIVE CARDIOMYOPATHY [None]
